FAERS Safety Report 14262296 (Version 2)
Quarter: 2019Q2

REPORT INFORMATION
  Report Type: Spontaneous
  Country: US (occurrence: US)
  Receive Date: 20171208
  Receipt Date: 20190412
  Transmission Date: 20190711
  Serious: Yes (Hospitalization, Other)
  Sender: FDA-Public Use
  Company Number: US-ACCORD-061677

PATIENT
  Age: 67 Year
  Sex: Male

DRUGS (3)
  1. GEMCITABINE/GEMCITABINE HYDROCHLORIDE [Suspect]
     Active Substance: GEMCITABINE\GEMCITABINE HYDROCHLORIDE
     Indication: TRANSITIONAL CELL CARCINOMA
  2. CISPLATIN. [Concomitant]
     Active Substance: CISPLATIN
     Indication: TRANSITIONAL CELL CARCINOMA
  3. PACLITAXEL/PACLITAXEL LIPOSOME [Suspect]
     Active Substance: PACLITAXEL
     Indication: TRANSITIONAL CELL CARCINOMA
     Dosage: 5 CYCLES OF WEEKLY RADIO SENSITIZING METRONOMIC PACLITAXEL

REACTIONS (7)
  - Normocytic anaemia [Unknown]
  - Pneumonitis [Recovering/Resolving]
  - Organising pneumonia [Recovering/Resolving]
  - Candida infection [Recovering/Resolving]
  - Pulmonary alveolar haemorrhage [Recovering/Resolving]
  - Stenotrophomonas infection [Recovering/Resolving]
  - Pulmonary toxicity [Recovering/Resolving]
